FAERS Safety Report 5015312-0 (Version None)
Quarter: 2006Q2

REPORT INFORMATION
  Report Type: 
  Country: None (occurrence: None)
  Receive Date: 20060530
  Receipt Date: 20060530
  Transmission Date: 20061013
  Serious: No
  Sender: FDA-Public Use
  Company Number: None

PATIENT
  Age: 60 Year
  Sex: Male

DRUGS (2)
  1. HYDROMORPHONE HCL [Suspect]
     Indication: PAIN
     Dosage: IV
     Route: 042
  2. MORPHINE [Suspect]
     Dosage: IV
     Route: 042

REACTIONS (12)
  - APNOEIC ATTACK [None]
  - CHILLS [None]
  - DEPRESSED LEVEL OF CONSCIOUSNESS [None]
  - DYSPNOEA [None]
  - LETHARGY [None]
  - LUNG NEOPLASM MALIGNANT [None]
  - NAUSEA [None]
  - OEDEMA [None]
  - PYREXIA [None]
  - RESPIRATORY DISTRESS [None]
  - SEDATION [None]
  - STRIDOR [None]
